FAERS Safety Report 7134280-9 (Version None)
Quarter: 2010Q4

REPORT INFORMATION
  Report Type: 
  Country: None (occurrence: None)
  Receive Date: 20101117
  Receipt Date: 20101103
  Transmission Date: 20110411
  Serious: Yes (Hospitalization)
  Sender: FDA-Public Use
  Company Number: KV201000342

PATIENT
  Age: 44 Year
  Sex: Male

DRUGS (2)
  1. PREDNISOLONE [Suspect]
     Indication: APLASTIC ANAEMIA
     Dosage: 20 MG,QD; 10 MG,QD
  2. CYCLOSPORINE [Suspect]
     Indication: APLASTIC ANAEMIA
     Dosage: 200 MG, QD

REACTIONS (2)
  - NOCARDIOSIS [None]
  - SUBCUTANEOUS ABSCESS [None]
